FAERS Safety Report 8447249-9 (Version None)
Quarter: 2012Q2

REPORT INFORMATION
  Report Type: 
  Country: None (occurrence: None)
  Receive Date: 20120619
  Receipt Date: 20110909
  Transmission Date: 20120825
  Serious: No
  Sender: FDA-Public Use
  Company Number: US-PFIZER INC-K201101047

PATIENT
  Sex: Male
  Weight: 90.703 kg

DRUGS (3)
  1. LEVOXYL [Suspect]
     Dosage: 125 UG, 1X/DAY
     Route: 048
  2. ASPIRIN [Concomitant]
     Dosage: 81 MG, 4-5 TIMES A WEEK
  3. LEVOXYL [Suspect]
     Indication: HYPOTHYROIDISM
     Dosage: UNK
     Route: 048

REACTIONS (7)
  - DIZZINESS [None]
  - MEMORY IMPAIRMENT [None]
  - SOMNOLENCE [None]
  - HYPOTENSION [None]
  - DYSPNOEA [None]
  - FATIGUE [None]
  - WEIGHT DECREASED [None]
